FAERS Safety Report 20144538 (Version 1)
Quarter: 2021Q4

REPORT INFORMATION
  Report Type: Spontaneous
  Country: US (occurrence: None)
  Receive Date: 20211202
  Receipt Date: 20211202
  Transmission Date: 20220304
  Serious: Yes (Other)
  Sender: FDA-Public Use
  Company Number: None

PATIENT
  Age: 41 Year
  Sex: Male

DRUGS (1)
  1. REGEN-COV [Suspect]
     Active Substance: CASIRIVIMAB\IMDEVIMAB
     Indication: COVID-19
     Dates: start: 20211126, end: 20211126

REACTIONS (6)
  - Hyperhidrosis [None]
  - Dizziness [None]
  - Nausea [None]
  - Presyncope [None]
  - Tunnel vision [None]
  - Hypotension [None]

NARRATIVE: CASE EVENT DATE: 20211126
